FAERS Safety Report 16973245 (Version 1)
Quarter: 2019Q4

REPORT INFORMATION
  Report Type: Spontaneous
  Country: FR (occurrence: FR)
  Receive Date: 20191030
  Receipt Date: 20191030
  Transmission Date: 20200122
  Serious: Yes (Hospitalization)
  Sender: FDA-Public Use
  Company Number: FR-TEVA-2019-FR-1129243

PATIENT
  Age: 65 Year
  Sex: Male
  Weight: 72 kg

DRUGS (5)
  1. VELBE [Suspect]
     Active Substance: VINBLASTINE SULFATE
     Indication: BLADDER CANCER
     Dosage: VINBLASTINE 3 MG / M? OR 5.6 MG OVER 10 MIN ON DAY 2
     Route: 042
     Dates: start: 20190814, end: 20190814
  2. METHOTREXATE MYLAN [Suspect]
     Active Substance: METHOTREXATE SODIUM
     Indication: BLADDER CANCER
     Dosage: 30 MG / M? OR 56 MG OVER 30 MIN ON DAY 1
     Route: 042
     Dates: start: 20190813, end: 20190814
  3. BISOPROLOL (FUMARATE ACIDE DE) [Concomitant]
     Active Substance: BISOPROLOL FUMARATE
     Indication: HYPERTENSION
     Dosage: 5 MG
     Route: 048
  4. DOXORUBICINE TEVA [Suspect]
     Active Substance: DOXORUBICIN
     Indication: BLADDER CANCER
     Dosage: 30 MG / M? OR 56 MG OVER 15 MIN ON DAY 2
     Route: 042
     Dates: start: 20190814, end: 20190814
  5. CISPLATINE MYLAN [Suspect]
     Active Substance: CISPLATIN
     Indication: BLADDER CANCER
     Dosage: 70 MG / M? OR 130 MG OVER 1 HOUR ON DAY 2
     Route: 042
     Dates: start: 20190814, end: 20190814

REACTIONS (3)
  - Electrocardiogram change [Recovered/Resolved]
  - Cardiac failure [Not Recovered/Not Resolved]
  - Hypertension [Not Recovered/Not Resolved]

NARRATIVE: CASE EVENT DATE: 20190820
